FAERS Safety Report 7759099-7 (Version None)
Quarter: 2011Q3

REPORT INFORMATION
  Report Type: 
  Country: None (occurrence: None)
  Receive Date: 20110919
  Receipt Date: 20110913
  Transmission Date: 20111222
  Serious: Yes (Death, Life-Threatening, Hospitalization, Other)
  Sender: FDA-Public Use
  Company Number: PHHY2010JP30973

PATIENT
  Sex: Male
  Weight: 81 kg

DRUGS (14)
  1. INTRON A [Concomitant]
     Dosage: 6000000 IU,
     Route: 041
     Dates: start: 19990401, end: 20060101
  2. IMUNOMAX GAMMA [Concomitant]
     Dosage: UNK UKN, UNK
     Route: 042
     Dates: start: 20060401, end: 20080701
  3. RADIATION THERAPY [Concomitant]
     Dosage: UNK UKN, UNK
     Dates: start: 20100408, end: 20100421
  4. PURSENNID [Concomitant]
     Dosage: 24 MG,
     Route: 048
     Dates: start: 20100416
  5. SELBEX [Concomitant]
     Dosage: 100 MG,
     Route: 048
     Dates: start: 20090116
  6. LOXONIN [Concomitant]
     Dosage: 120 MG,
     Route: 048
     Dates: start: 20090116
  7. AFINITOR [Suspect]
     Indication: METASTATIC RENAL CELL CARCINOMA
     Dosage: 10 MG, UNK
     Route: 048
     Dates: start: 20100420, end: 20100507
  8. OXINORM [Concomitant]
     Dosage: 2.5 MG,
     Route: 048
     Dates: start: 20100330
  9. OXYCONTIN [Concomitant]
     Dosage: 15 MG,
     Route: 048
     Dates: start: 20100330
  10. MAGNESIUM OXIDE [Concomitant]
     Dosage: 3 G,
     Route: 048
     Dates: start: 20090612
  11. SUTENT [Concomitant]
     Dosage: 50 MG,
     Route: 048
     Dates: start: 20090815, end: 20100329
  12. NEXAVAR [Concomitant]
     Dosage: 800 MG,
     Route: 048
     Dates: start: 20080808, end: 20090101
  13. PROCHLORPERAZINE [Concomitant]
     Dosage: 15 MG,
     Route: 048
     Dates: start: 20100416
  14. LANSOPRAZOLE [Concomitant]
     Dosage: 30 MG,
     Route: 048
     Dates: start: 20100109

REACTIONS (6)
  - SKIN EXFOLIATION [None]
  - HAEMATEMESIS [None]
  - NEOPLASM MALIGNANT [None]
  - EYELID OEDEMA [None]
  - NEOPLASM PROGRESSION [None]
  - RASH GENERALISED [None]
